FAERS Safety Report 7204914-9 (Version None)
Quarter: 2010Q4

REPORT INFORMATION
  Report Type: 
  Country: None (occurrence: None)
  Receive Date: 20101230
  Receipt Date: 20101221
  Transmission Date: 20110411
  Serious: Yes (Other)
  Sender: FDA-Public Use
  Company Number: US-PFIZER INC-2010177453

PATIENT
  Sex: Female

DRUGS (1)
  1. LYRICA [Suspect]
     Indication: BACK DISORDER

REACTIONS (2)
  - CONVULSION [None]
  - DYSKINESIA [None]
